FAERS Safety Report 25077554 (Version 2)
Quarter: 2025Q4

REPORT INFORMATION
  Report Type: Report from Study
  Country: US (occurrence: US)
  Receive Date: 20250314
  Receipt Date: 20251103
  Transmission Date: 20260118
  Serious: Yes (Other)
  Sender: CELLTRION
  Company Number: US-CELLTRION INC.-2025US004468

PATIENT

DRUGS (1)
  1. INFLIXIMAB-DYYB [Suspect]
     Active Substance: INFLIXIMAB-DYYB
     Indication: Product used for unknown indication
     Dosage: 120 MG/ML PEN KIT (INJECT THE CONTENTS OF ONE DEVICE UNDER THE SKIN EVERY TWO WEEKS)
     Route: 065

REACTIONS (2)
  - COVID-19 [Unknown]
  - Intentional dose omission [Unknown]
